FAERS Safety Report 5627073-2 (Version None)
Quarter: 2008Q1

REPORT INFORMATION
  Report Type: 
  Country: None (occurrence: None)
  Receive Date: 20080115
  Receipt Date: 20071129
  Transmission Date: 20080703
  Serious: Yes (Hospitalization)
  Sender: FDA-Public Use
  Company Number: LUP-0193

PATIENT
  Age: 52 Year
  Sex: Male

DRUGS (2)
  1. LISINOPRIL [Suspect]
     Indication: PROTEINURIA
     Dosage: 10 MG PO DAILY
     Route: 048
  2. FUROSEMIDE [Suspect]
     Indication: PROTEINURIA
     Dosage: 20 MG DAILY ; 60 MG DAILY

REACTIONS (1)
  - RENAL FAILURE ACUTE [None]
